FAERS Safety Report 9150127 (Version 2)
Quarter: 2013Q2

REPORT INFORMATION
  Report Type: Spontaneous
  Country: SE (occurrence: SE)
  Receive Date: 20130308
  Receipt Date: 20130404
  Transmission Date: 20140414
  Serious: Yes (Life-Threatening, Hospitalization)
  Sender: FDA-Public Use
  Company Number: SE-JNJFOC-20130215777

PATIENT
  Age: 70 Year
  Sex: Female

DRUGS (4)
  1. SIMPONI [Suspect]
     Indication: RHEUMATOID ARTHRITIS
     Route: 058
     Dates: start: 20100220
  2. SIMPONI [Suspect]
     Indication: RHEUMATOID ARTHRITIS
     Route: 058
     Dates: start: 20101220, end: 20120613
  3. NSAIDS [Concomitant]
     Route: 065
     Dates: start: 20090120, end: 20091208
  4. METHOTREXATE [Concomitant]
     Dosage: STOP DATE: MAY/JUNE 2012
     Route: 065
     Dates: start: 20090128, end: 2012

REACTIONS (2)
  - Genital neoplasm malignant female [Unknown]
  - Malignant peritoneal neoplasm [Unknown]
